FAERS Safety Report 4941178-0 (Version None)
Quarter: 2006Q1

REPORT INFORMATION
  Report Type: 
  Country: None (occurrence: None)
  Receive Date: 20060308
  Receipt Date: 20060228
  Transmission Date: 20060701
  Serious: Yes (Other)
  Sender: FDA-Public Use
  Company Number: 2006029792

PATIENT
  Age: 79 Year
  Sex: Male
  Weight: 79.8331 kg

DRUGS (14)
  1. NEURONTIN [Suspect]
     Indication: NEUROPATHY
     Dosage: 200 MG (200 MG, 1 IN 1 D), ORAL
     Route: 048
     Dates: end: 20031001
  2. CELEBREX [Suspect]
     Indication: ARTHRALGIA
     Dosage: 200 MG (200 MG, 1 IN 1 D), ORAL
     Route: 048
  3. XANAX [Suspect]
     Indication: ANXIETY
     Dosage: ORAL
     Route: 048
     Dates: start: 20030601
  4. OXYCODONE [Concomitant]
  5. DURAGESIC-100 [Concomitant]
  6. PROPOXYPHENE HCL [Concomitant]
  7. DIGOXIN [Concomitant]
  8. AMBIEN [Concomitant]
  9. MEVACOR [Concomitant]
  10. COMBIVENT [Concomitant]
  11. PROZAC [Concomitant]
  12. ASPIRIN [Concomitant]
  13. HYDROCODONE [Concomitant]
  14. CYANOCOBALAMIN [Concomitant]

REACTIONS (13)
  - ANXIETY [None]
  - ARTHRITIS [None]
  - BLINDNESS UNILATERAL [None]
  - DEVICE MIGRATION [None]
  - DIZZINESS [None]
  - DRUG INEFFECTIVE [None]
  - GASTRIC DISORDER [None]
  - HEART RATE DECREASED [None]
  - HYPOACUSIS [None]
  - LOSS OF CONSCIOUSNESS [None]
  - MACULAR DEGENERATION [None]
  - PACEMAKER COMPLICATION [None]
  - VISUAL ACUITY REDUCED [None]
